FAERS Safety Report 6941416-9 (Version None)
Quarter: 2010Q3

REPORT INFORMATION
  Report Type: 
  Country: None (occurrence: None)
  Receive Date: 20100825
  Receipt Date: 20100811
  Transmission Date: 20110219
  Serious: Yes (Hospitalization)
  Sender: FDA-Public Use
  Company Number: NL-MYLANLABS-2010S1014586

PATIENT
  Age: 43 Year
  Sex: Male

DRUGS (4)
  1. LEVODOPA [Suspect]
     Indication: PARKINSON'S DISEASE
     Route: 065
  2. ROPINIROLE [Suspect]
     Indication: PARKINSON'S DISEASE
     Route: 065
  3. CLONAZEPAM [Concomitant]
     Indication: PSYCHOMOTOR HYPERACTIVITY
     Route: 065
  4. TRAMADOL HCL [Concomitant]
     Indication: BACK PAIN
     Route: 065

REACTIONS (1)
  - DOPAMINE DYSREGULATION SYNDROME [None]
